FAERS Safety Report 8416792-0 (Version None)
Quarter: 2012Q2

REPORT INFORMATION
  Report Type: 
  Country: None (occurrence: None)
  Receive Date: 20120606
  Receipt Date: 20120604
  Transmission Date: 20120825
  Serious: Yes (Hospitalization, Disabling)
  Sender: FDA-Public Use
  Company Number: US-MERCK-1111USA00987

PATIENT
  Sex: Female

DRUGS (4)
  1. FOSAMAX [Suspect]
     Indication: OSTEOPOROSIS
     Route: 048
     Dates: start: 19980101, end: 20001001
  2. FOSAMAX [Suspect]
     Route: 048
     Dates: start: 20001001, end: 20080201
  3. ALENDRONATE SODIUM [Suspect]
     Route: 048
     Dates: start: 20090623, end: 20090701
  4. ALENDRONATE SODIUM [Suspect]
     Indication: OSTEOPOROSIS
     Route: 048
     Dates: start: 20080201, end: 20090801

REACTIONS (7)
  - FEMUR FRACTURE [None]
  - ADVERSE EVENT [None]
  - LIMB ASYMMETRY [None]
  - BLOOD PRESSURE INCREASED [None]
  - BLOOD CHOLESTEROL INCREASED [None]
  - THYROID DISORDER [None]
  - LOW TURNOVER OSTEOPATHY [None]
